FAERS Safety Report 19972646 (Version 2)
Quarter: 2022Q1

REPORT INFORMATION
  Report Type: Spontaneous
  Country: US (occurrence: US)
  Receive Date: 20211019
  Receipt Date: 20220218
  Transmission Date: 20220423
  Serious: No
  Sender: FDA-Public Use
  Company Number: US-009507513-2110USA004141

PATIENT
  Age: 57 Year
  Sex: Female

DRUGS (3)
  1. KEYTRUDA [Suspect]
     Active Substance: PEMBROLIZUMAB
     Dosage: EVERY 3 WEEKS
     Dates: start: 2021
  2. LENVATINIB MESYLATE [Suspect]
     Active Substance: LENVATINIB MESYLATE
     Indication: Endometrial cancer
     Dosage: 20 MG DAILY
     Route: 048
     Dates: start: 20210930
  3. LENVATINIB MESYLATE [Suspect]
     Active Substance: LENVATINIB MESYLATE
     Dosage: 14 MG DAILY
     Route: 048

REACTIONS (10)
  - Dysphonia [Not Recovered/Not Resolved]
  - Paraesthesia oral [Recovering/Resolving]
  - Dyspepsia [Not Recovered/Not Resolved]
  - Fatigue [Recovering/Resolving]
  - Abdominal pain upper [Not Recovered/Not Resolved]
  - Diarrhoea [Not Recovered/Not Resolved]
  - Pruritus [Recovering/Resolving]
  - Dehydration [Unknown]
  - Dyspepsia [Not Recovered/Not Resolved]
  - Product dose omission issue [Unknown]

NARRATIVE: CASE EVENT DATE: 20210101
